FAERS Safety Report 4434708-9 (Version None)
Quarter: 2004Q3

REPORT INFORMATION
  Report Type: 
  Country: None (occurrence: None)
  Receive Date: 20040827
  Receipt Date: 20040506
  Transmission Date: 20050211
  Serious: Yes (Life-Threatening, Hospitalization)
  Sender: FDA-Public Use
  Company Number: US-BRISTOL-MYERS SQUIBB COMPANY-12581419

PATIENT
  Age: 42 Year
  Sex: Male

DRUGS (1)
  1. DEFINITY [Suspect]
     Indication: ECHOCARDIOGRAM
     Dosage: ^MDILUTED BOLUS^
     Route: 040
     Dates: start: 20040506, end: 20040506

REACTIONS (2)
  - CARDIO-RESPIRATORY ARREST [None]
  - PAIN [None]
